FAERS Safety Report 26198699 (Version 1)
Quarter: 2025Q4

REPORT INFORMATION
  Report Type: Spontaneous
  Country: CN (occurrence: CN)
  Receive Date: 20251225
  Receipt Date: 20251225
  Transmission Date: 20260118
  Serious: Yes (Hospitalization)
  Sender: BEIGENE
  Company Number: CN-BEONEMEDICINES-BGN-2025-023400

PATIENT
  Age: 53 Year
  Sex: Male
  Weight: 50 kg

DRUGS (24)
  1. TISLELIZUMAB [Suspect]
     Active Substance: TISLELIZUMAB
     Indication: Lung adenocarcinoma
     Dosage: 200 MILLIGRAM, D1, Q3WK
     Dates: start: 20250814
  2. TISLELIZUMAB [Suspect]
     Active Substance: TISLELIZUMAB
     Dosage: 200 MILLIGRAM, D1, Q3WK
     Dates: start: 20250814
  3. TISLELIZUMAB [Suspect]
     Active Substance: TISLELIZUMAB
     Dosage: 200 MILLIGRAM, D1, Q3WK
     Route: 041
     Dates: start: 20250814
  4. TISLELIZUMAB [Suspect]
     Active Substance: TISLELIZUMAB
     Dosage: 200 MILLIGRAM, D1, Q3WK
     Route: 041
     Dates: start: 20250814
  5. TISLELIZUMAB [Suspect]
     Active Substance: TISLELIZUMAB
     Dosage: 200 MILLIGRAM, D1, Q3WK
     Dates: start: 20250911
  6. TISLELIZUMAB [Suspect]
     Active Substance: TISLELIZUMAB
     Dosage: 200 MILLIGRAM, D1, Q3WK
     Dates: start: 20250911
  7. TISLELIZUMAB [Suspect]
     Active Substance: TISLELIZUMAB
     Dosage: 200 MILLIGRAM, D1, Q3WK
     Route: 041
     Dates: start: 20250911
  8. TISLELIZUMAB [Suspect]
     Active Substance: TISLELIZUMAB
     Dosage: 200 MILLIGRAM, D1, Q3WK
     Route: 041
     Dates: start: 20250911
  9. PEMETREXED DISODIUM [Suspect]
     Active Substance: PEMETREXED DISODIUM
     Indication: Lung adenocarcinoma
     Dosage: 0.7 GRAM, D1, Q3WK
     Dates: start: 20250814
  10. PEMETREXED DISODIUM [Suspect]
     Active Substance: PEMETREXED DISODIUM
     Dosage: 0.7 GRAM, D1, Q3WK
     Dates: start: 20250814
  11. PEMETREXED DISODIUM [Suspect]
     Active Substance: PEMETREXED DISODIUM
     Dosage: 0.7 GRAM, D1, Q3WK
     Route: 041
     Dates: start: 20250814
  12. PEMETREXED DISODIUM [Suspect]
     Active Substance: PEMETREXED DISODIUM
     Dosage: 0.7 GRAM, D1, Q3WK
     Route: 041
     Dates: start: 20250814
  13. PEMETREXED DISODIUM [Suspect]
     Active Substance: PEMETREXED DISODIUM
     Dosage: 0.7 GRAM, D1, Q3WK
     Dates: start: 20250911
  14. PEMETREXED DISODIUM [Suspect]
     Active Substance: PEMETREXED DISODIUM
     Dosage: 0.7 GRAM, D1, Q3WK
     Dates: start: 20250911
  15. PEMETREXED DISODIUM [Suspect]
     Active Substance: PEMETREXED DISODIUM
     Dosage: 0.7 GRAM, D1, Q3WK
     Route: 041
     Dates: start: 20250911
  16. PEMETREXED DISODIUM [Suspect]
     Active Substance: PEMETREXED DISODIUM
     Dosage: 0.7 GRAM, D1, Q3WK
     Route: 041
     Dates: start: 20250911
  17. CARBOPLATIN [Suspect]
     Active Substance: CARBOPLATIN
     Indication: Lung adenocarcinoma
     Dosage: 0.45 GRAM, D1, Q3WK
     Dates: start: 20250814
  18. CARBOPLATIN [Suspect]
     Active Substance: CARBOPLATIN
     Dosage: 0.45 GRAM, D1, Q3WK
     Dates: start: 20250814
  19. CARBOPLATIN [Suspect]
     Active Substance: CARBOPLATIN
     Dosage: 0.45 GRAM, D1, Q3WK
     Route: 041
     Dates: start: 20250814
  20. CARBOPLATIN [Suspect]
     Active Substance: CARBOPLATIN
     Dosage: 0.45 GRAM, D1, Q3WK
     Route: 041
     Dates: start: 20250814
  21. CARBOPLATIN [Suspect]
     Active Substance: CARBOPLATIN
     Dosage: 0.45 GRAM, D1, Q3WK
     Dates: start: 20250911
  22. CARBOPLATIN [Suspect]
     Active Substance: CARBOPLATIN
     Dosage: 0.45 GRAM, D1, Q3WK
     Dates: start: 20250911
  23. CARBOPLATIN [Suspect]
     Active Substance: CARBOPLATIN
     Dosage: 0.45 GRAM, D1, Q3WK
     Route: 041
     Dates: start: 20250911
  24. CARBOPLATIN [Suspect]
     Active Substance: CARBOPLATIN
     Dosage: 0.45 GRAM, D1, Q3WK
     Route: 041
     Dates: start: 20250911

REACTIONS (1)
  - Transaminases increased [Recovering/Resolving]

NARRATIVE: CASE EVENT DATE: 20250901
